FAERS Safety Report 10257507 (Version 1)
Quarter: 2014Q2

REPORT INFORMATION
  Report Type: Spontaneous
  Country: US (occurrence: US)
  Receive Date: 20140625
  Receipt Date: 20140625
  Transmission Date: 20141212
  Serious: No
  Sender: FDA-Public Use
  Company Number: US-GLAXOSMITHKLINE-A1053224A

PATIENT
  Sex: Female

DRUGS (8)
  1. VERAMYST [Suspect]
     Indication: NASAL CONGESTION
     Dosage: 4SPR PER DAY
     Route: 045
  2. DILTIAZEM [Concomitant]
  3. FLECAINIDE ACETATE [Concomitant]
  4. LIPITOR [Concomitant]
  5. MELOXICAM [Concomitant]
  6. OMEPRAZOLE [Concomitant]
  7. PRADAXA [Concomitant]
  8. TRAZODONE [Concomitant]

REACTIONS (3)
  - Drug ineffective [Unknown]
  - Nasal congestion [Unknown]
  - Product quality issue [Unknown]
